FAERS Safety Report 5158504-2 (Version None)
Quarter: 2006Q4

REPORT INFORMATION
  Report Type: 
  Country: None (occurrence: None)
  Receive Date: 20061128
  Receipt Date: 20030501
  Transmission Date: 20070319
  Serious: Yes (Hospitalization)
  Sender: FDA-Public Use
  Company Number: 2003AP01815

PATIENT
  Age: 18826 Day
  Sex: Female

DRUGS (6)
  1. ARIMIDEX [Suspect]
     Indication: BREAST CANCER METASTATIC
     Route: 048
     Dates: start: 20030219, end: 20030411
  2. HERCEPTIN [Suspect]
     Indication: BREAST CANCER METASTATIC
     Dosage: LOADING DOSE
     Route: 042
     Dates: start: 20030219, end: 20030219
  3. HERCEPTIN [Suspect]
     Route: 042
     Dates: start: 20030227, end: 20030305
  4. HERCEPTIN [Suspect]
     Route: 042
     Dates: start: 20030312, end: 20030402
  5. SPASMO PROXYVON [Suspect]
     Route: 065
     Dates: start: 20030213, end: 20030225
  6. DEXAMETHASONE 4MG TAB [Suspect]
     Route: 065
     Dates: start: 20030304, end: 20030310

REACTIONS (21)
  - ALANINE AMINOTRANSFERASE INCREASED [None]
  - ANOREXIA [None]
  - ASPARTATE AMINOTRANSFERASE INCREASED [None]
  - BLOOD ALKALINE PHOSPHATASE INCREASED [None]
  - BLOOD BILIRUBIN INCREASED [None]
  - BLOOD CREATININE INCREASED [None]
  - BLOOD LACTATE DEHYDROGENASE INCREASED [None]
  - BLOOD POTASSIUM DECREASED [None]
  - ELECTROCARDIOGRAM ST-T CHANGE [None]
  - ELECTROCARDIOGRAM T WAVE INVERSION [None]
  - ELECTROLYTE IMBALANCE [None]
  - GASTRITIS [None]
  - HEPATOMEGALY [None]
  - HYPERCALCAEMIA [None]
  - HYPERTENSION [None]
  - JAUNDICE [None]
  - MALIGNANT NEOPLASM PROGRESSION [None]
  - METASTASES TO ADRENALS [None]
  - NAUSEA [None]
  - ULTRASOUND LIVER ABNORMAL [None]
  - VOMITING [None]
